FAERS Safety Report 8454953-5 (Version None)
Quarter: 2012Q2

REPORT INFORMATION
  Report Type: 
  Country: None (occurrence: None)
  Receive Date: 20120621
  Receipt Date: 20120618
  Transmission Date: 20120825
  Serious: Yes (Other)
  Sender: FDA-Public Use
  Company Number: US-PFIZER INC-2012147374

PATIENT
  Sex: Male
  Weight: 77.1 kg

DRUGS (1)
  1. GABAPENTIN [Suspect]
     Indication: NEUROPATHY PERIPHERAL
     Dosage: 300 MG, 2X/DAY
     Dates: start: 20120423, end: 20120518

REACTIONS (3)
  - DIPLOPIA [None]
  - VISION BLURRED [None]
  - CATARACT [None]
